APPROVED DRUG PRODUCT: CEPHALEXIN
Active Ingredient: CEPHALEXIN
Strength: EQ 250MG BASE
Dosage Form/Route: CAPSULE;ORAL
Application: A062713 | Product #001 | TE Code: AB
Applicant: AJENAT PHARMACEUTICALS LLC
Approved: Jul 15, 1988 | RLD: No | RS: No | Type: RX